FAERS Safety Report 5469727-7 (Version None)
Quarter: 2007Q3

REPORT INFORMATION
  Report Type: 
  Country: None (occurrence: None)
  Receive Date: 20070927
  Receipt Date: 20070413
  Transmission Date: 20080115
  Serious: No
  Sender: FDA-Public Use
  Company Number: US-AMGEN-KDL219390

PATIENT
  Sex: Female
  Weight: 136.2 kg

DRUGS (2)
  1. NEULASTA [Suspect]
     Indication: CHEMOTHERAPY
     Dates: start: 20070101
  2. NEUPOGEN [Suspect]
     Route: 058
     Dates: start: 20070101

REACTIONS (2)
  - PANCYTOPENIA [None]
  - PYREXIA [None]
